FAERS Safety Report 11713498 (Version 1)
Quarter: 2015Q4

REPORT INFORMATION
  Report Type: Report from Study
  Country: CA (occurrence: CA)
  Receive Date: 20151109
  Receipt Date: 20151109
  Transmission Date: 20160304
  Serious: Yes (Hospitalization)
  Sender: FDA-Public Use
  Company Number: CA-ABBVIE-15K-028-1495198-00

PATIENT
  Sex: Female

DRUGS (1)
  1. HUMIRA [Suspect]
     Active Substance: ADALIMUMAB
     Indication: RHEUMATOID ARTHRITIS
     Route: 058
     Dates: start: 20150101

REACTIONS (10)
  - Blood pressure increased [Recovering/Resolving]
  - Tooth impacted [Unknown]
  - Foot deformity [Not Recovered/Not Resolved]
  - Blood glucose increased [Recovering/Resolving]
  - Facial bones fracture [Unknown]
  - Jaw fracture [Unknown]
  - Rheumatoid arthritis [Not Recovered/Not Resolved]
  - Depression [Recovering/Resolving]
  - Fall [Recovered/Resolved with Sequelae]
  - Finger deformity [Not Recovered/Not Resolved]

NARRATIVE: CASE EVENT DATE: 2015
